FAERS Safety Report 12401131 (Version 1)
Quarter: 2016Q2

REPORT INFORMATION
  Report Type: Spontaneous
  Country: US (occurrence: US)
  Receive Date: 20160525
  Receipt Date: 20160525
  Transmission Date: 20160815
  Serious: No
  Sender: FDA-Public Use
  Company Number: US-SA-2015SA058460

PATIENT
  Age: 69 Year
  Sex: Male

DRUGS (3)
  1. NOVOLIN [Concomitant]
     Active Substance: INSULIN HUMAN
     Dosage: DOSE:40 UNIT(S)
  2. LANTUS [Suspect]
     Active Substance: INSULIN GLARGINE
     Indication: TYPE 2 DIABETES MELLITUS
     Dosage: LANTUS DOSE HAS RANGED BETWEEN 50-75 UNITS, CURRENTLY IT IS 68 UNITS DAILY
     Route: 065
     Dates: start: 2014
  3. HERBAL NOS [Concomitant]
     Active Substance: HERBALS

REACTIONS (2)
  - Blood glucose increased [Not Recovered/Not Resolved]
  - Weight decreased [Not Recovered/Not Resolved]

NARRATIVE: CASE EVENT DATE: 201503
